FAERS Safety Report 4846230-6 (Version None)
Quarter: 2005Q4

REPORT INFORMATION
  Report Type: 
  Country: None (occurrence: None)
  Receive Date: 20051206
  Receipt Date: 20051108
  Transmission Date: 20060501
  Serious: Yes (Hospitalization, Other)
  Sender: FDA-Public Use
  Company Number: FR-ABBOTT-05P-056-0316748-00

PATIENT
  Sex: Male
  Weight: 102 kg

DRUGS (3)
  1. DEPAKOTE [Suspect]
     Indication: BIPOLAR DISORDER
     Route: 048
     Dates: start: 20051017, end: 20051022
  2. CYAMEMAZINE [Concomitant]
     Indication: ANXIETY
     Route: 048
  3. ZOPICLONE [Concomitant]
     Indication: INSOMNIA
     Route: 048

REACTIONS (4)
  - HYPERTRIGLYCERIDAEMIA [None]
  - HYPOXIA [None]
  - PANCREATITIS ACUTE [None]
  - PLATELET COUNT DECREASED [None]
